FAERS Safety Report 4824674-6 (Version None)
Quarter: 2005Q4

REPORT INFORMATION
  Report Type: 
  Country: None (occurrence: None)
  Receive Date: 20051108
  Receipt Date: 20051026
  Transmission Date: 20060501
  Serious: Yes (Other)
  Sender: FDA-Public Use
  Company Number: 2005142126

PATIENT
  Age: 78 Year
  Sex: Male
  Weight: 64 kg

DRUGS (1)
  1. VIAGRA [Suspect]
     Indication: ERECTILE DYSFUNCTION
     Dosage: UNKNOWN, ORAL
     Route: 048
     Dates: start: 20050101, end: 20050301

REACTIONS (1)
  - RETINAL VEIN THROMBOSIS [None]
